FAERS Safety Report 18152496 (Version 1)
Quarter: 2020Q3

REPORT INFORMATION
  Report Type: Report from Study
  Country: US (occurrence: US)
  Receive Date: 20200814
  Receipt Date: 20200814
  Transmission Date: 20201103
  Serious: Yes (Hospitalization)
  Sender: FDA-Public Use
  Company Number: US-ADAMAS PHARMA, LLC-2020ADA01813

PATIENT
  Age: 78 Year
  Sex: Female
  Weight: 54.42 kg

DRUGS (7)
  1. GOCOVRI [Suspect]
     Active Substance: AMANTADINE
     Indication: DYSKINESIA
     Dosage: 68.5 MG, 1X/DAY, AT BEDTIME
     Route: 048
     Dates: start: 20200714, end: 20200720
  2. ALPRAZOLAM. [Concomitant]
     Active Substance: ALPRAZOLAM
  3. MIRTAZAPINE. [Concomitant]
     Active Substance: MIRTAZAPINE
  4. GOCOVRI [Suspect]
     Active Substance: AMANTADINE
     Dosage: 137 MG, 1X/DAY, AT BEDTIME
     Route: 048
     Dates: start: 20200721, end: 2020
  5. TYLENOL [Concomitant]
     Active Substance: ACETAMINOPHEN
     Dosage: UNK
     Dates: end: 20200722
  6. PEDIATRIC STOOL SOFTENER [Concomitant]
  7. CARBIDOPA/LEVODOPA [Concomitant]
     Active Substance: CARBIDOPA\LEVODOPA

REACTIONS (6)
  - Tremor [Unknown]
  - Urinary retention [Recovered/Resolved]
  - Small intestinal obstruction [Recovered/Resolved]
  - Intestinal operation [Recovering/Resolving]
  - Unevaluable event [Not Recovered/Not Resolved]
  - Sleep disorder [Not Recovered/Not Resolved]

NARRATIVE: CASE EVENT DATE: 202007
